FAERS Safety Report 18622418 (Version 1)
Quarter: 2020Q4

REPORT INFORMATION
  Report Type: Spontaneous
  Country: CR (occurrence: CR)
  Receive Date: 20201216
  Receipt Date: 20201216
  Transmission Date: 20210114
  Serious: Yes (Other)
  Sender: FDA-Public Use
  Company Number: CR-PFIZER INC-2020496335

PATIENT
  Age: 61 Year
  Sex: Male

DRUGS (2)
  1. LIPITOR [Suspect]
     Active Substance: ATORVASTATIN CALCIUM
     Dosage: 40 MG 1 DF DAILY
     Route: 048
     Dates: start: 2018
  2. LIPITOR [Suspect]
     Active Substance: ATORVASTATIN CALCIUM
     Dosage: 80 MG 1 DF DAILY
     Route: 048
     Dates: start: 2017, end: 2018

REACTIONS (1)
  - Infarction [Unknown]

NARRATIVE: CASE EVENT DATE: 20201102
